FAERS Safety Report 16852980 (Version 1)
Quarter: 2019Q3

REPORT INFORMATION
  Report Type: Spontaneous
  Country: US (occurrence: US)
  Receive Date: 20190925
  Receipt Date: 20190925
  Transmission Date: 20191005
  Serious: Yes (Other)
  Sender: FDA-Public Use
  Company Number: US-TEVA-2019-US-1112123

PATIENT
  Age: 55 Year
  Sex: Female

DRUGS (3)
  1. ZINC. [Suspect]
     Active Substance: ZINC
     Indication: MINERAL SUPPLEMENTATION
     Route: 065
  2. ZINC. [Suspect]
     Active Substance: ZINC
     Indication: DENTAL CARE
  3. AZACITIDINE. [Concomitant]
     Active Substance: AZACITIDINE
     Indication: MYELODYSPLASTIC SYNDROME
     Route: 065

REACTIONS (1)
  - Copper deficiency [Recovering/Resolving]
